FAERS Safety Report 5045150-4 (Version None)
Quarter: 2006Q3

REPORT INFORMATION
  Report Type: 
  Country: None (occurrence: None)
  Receive Date: 20060707
  Receipt Date: 20060627
  Transmission Date: 20061208
  Serious: Yes (Other)
  Sender: FDA-Public Use
  Company Number: AU-SANOFI-SYNTHELABO-A01200604846

PATIENT
  Sex: Female

DRUGS (1)
  1. STILNOX [Suspect]
     Indication: OVERDOSE
     Route: 065

REACTIONS (2)
  - CONVULSION [None]
  - OVERDOSE [None]
